FAERS Safety Report 7956962-9 (Version None)
Quarter: 2011Q4

REPORT INFORMATION
  Report Type: 
  Country: None (occurrence: None)
  Receive Date: 20111205
  Receipt Date: 20111020
  Transmission Date: 20120403
  Serious: No
  Sender: FDA-Public Use
  Company Number: US-BAYER-2011-102412

PATIENT

DRUGS (2)
  1. IBUPROFEN (ADVIL) [Concomitant]
     Indication: HEADACHE
     Dosage: 6 DF, UNK
     Route: 048
  2. ALEVE (CAPLET) [Suspect]
     Indication: HEADACHE
     Dosage: 3 DF, UNK

REACTIONS (1)
  - HEADACHE [None]
